FAERS Safety Report 7921317-X (Version None)
Quarter: 2011Q4

REPORT INFORMATION
  Report Type: 
  Country: None (occurrence: None)
  Receive Date: 20111117
  Receipt Date: 20111116
  Transmission Date: 20120403
  Serious: Yes (Other)
  Sender: FDA-Public Use
  Company Number: US-MYLANLABS-2011S1018396

PATIENT
  Age: 51 Year
  Sex: Male
  Weight: 64.86 kg

DRUGS (1)
  1. PANTOPRAZOLE SODIUM [Suspect]
     Indication: GASTROOESOPHAGEAL REFLUX DISEASE
     Route: 048
     Dates: start: 20110701, end: 20110831

REACTIONS (6)
  - DRUG INEFFECTIVE [None]
  - GASTROOESOPHAGEAL REFLUX DISEASE [None]
  - ARTHRALGIA [None]
  - EROSIVE OESOPHAGITIS [None]
  - NON-CARDIAC CHEST PAIN [None]
  - DIARRHOEA [None]
